FAERS Safety Report 9158137 (Version 1)
Quarter: 2013Q1

REPORT INFORMATION
  Report Type: Spontaneous
  Country: US (occurrence: None)
  Receive Date: 20130213
  Receipt Date: 20130213
  Transmission Date: 20140127
  Serious: Yes (Hospitalization)
  Sender: FDA-Public Use
  Company Number: 2013-027

PATIENT
  Sex: Male

DRUGS (1)
  1. PRIALT (ZICONOTIDE) INTRATHECAL INFUSION [Suspect]
     Route: 037
     Dates: end: 201301

REACTIONS (3)
  - Sluggishness [None]
  - Mental status changes [None]
  - Fall [None]
